FAERS Safety Report 25714582 (Version 1)
Quarter: 2025Q3

REPORT INFORMATION
  Report Type: Spontaneous
  Country: CA (occurrence: CA)
  Receive Date: 20250822
  Receipt Date: 20250822
  Transmission Date: 20251021
  Serious: Yes (Life-Threatening, Hospitalization)
  Sender: ROCHE
  Company Number: CA-002147023-NVSC2025CA130467

PATIENT
  Age: 37 Year
  Sex: Male

DRUGS (3)
  1. XOLAIR [Suspect]
     Active Substance: OMALIZUMAB
     Indication: Mast cell activation syndrome
     Dosage: 300 MG (1 EVERY 28 DAYS)
     Route: 058
  2. XOLAIR [Suspect]
     Active Substance: OMALIZUMAB
     Indication: Idiopathic urticaria
  3. XOLAIR [Suspect]
     Active Substance: OMALIZUMAB
     Indication: Cardiac arrest

REACTIONS (10)
  - Depression [Recovering/Resolving]
  - Headache [Recovering/Resolving]
  - Memory impairment [Recovering/Resolving]
  - Paranoia [Recovering/Resolving]
  - Confusional state [Recovering/Resolving]
  - Psychotic disorder [Recovering/Resolving]
  - Schizophrenia [Recovering/Resolving]
  - Seizure [Recovering/Resolving]
  - Suicidal ideation [Recovering/Resolving]
  - Off label use [Unknown]
